FAERS Safety Report 4412071-7 (Version None)
Quarter: 2004Q3

REPORT INFORMATION
  Report Type: 
  Country: None (occurrence: None)
  Receive Date: 20040730
  Receipt Date: 20040722
  Transmission Date: 20050211
  Serious: Yes (Hospitalization)
  Sender: FDA-Public Use
  Company Number: DE-BRISTOL-MYERS SQUIBB COMPANY-12648572

PATIENT
  Age: 57 Year
  Sex: Male

DRUGS (3)
  1. CISPLATIN [Suspect]
     Indication: SMALL CELL LUNG CANCER STAGE UNSPECIFIED
     Dosage: CYCLE 1: 29-MAR-2004 TREATMENT DELAYED UNTIL 18-MAY-2004
     Route: 042
     Dates: start: 20040421, end: 20040421
  2. ETOPOSIDE [Suspect]
     Indication: SMALL CELL LUNG CANCER STAGE UNSPECIFIED
     Dosage: CYCLE 1: 100 MG/M2 FROM 29-MAR-2004 TO 31-MAR-2004 TREATMENT DELAYED UNTIL 18-MAY-2004
     Route: 042
     Dates: start: 20040421, end: 20040423
  3. SODIUM CHLORIDE INJ [Suspect]
     Route: 042
     Dates: start: 20040421, end: 20040421

REACTIONS (2)
  - CONFUSIONAL STATE [None]
  - HYPONATRAEMIA [None]
